FAERS Safety Report 9470110 (Version 1)
Quarter: 2013Q3

REPORT INFORMATION
  Report Type: Spontaneous
  Country: US (occurrence: None)
  Receive Date: 20130820
  Receipt Date: 20130820
  Transmission Date: 20140515
  Serious: Yes (Other)
  Sender: FDA-Public Use
  Company Number: None

PATIENT
  Age: 39 Year
  Sex: Male
  Weight: 104 kg

DRUGS (6)
  1. HALOPERIDOL [Suspect]
     Indication: AGITATION
     Dosage: 2 TABLETS EVERY 4 HOURS PRN -- ORAL
     Route: 048
     Dates: start: 20130707, end: 20130708
  2. QUETIAPINE [Concomitant]
  3. HYDROXYZINE PAMOATE [Concomitant]
  4. NICOTINE PATCH [Concomitant]
  5. NICOTINE INHALER [Concomitant]
  6. MULTIVITAMIN [Concomitant]

REACTIONS (2)
  - Extrapyramidal disorder [None]
  - Muscle tightness [None]
